FAERS Safety Report 6840376-9 (Version None)
Quarter: 2010Q3

REPORT INFORMATION
  Report Type: 
  Country: None (occurrence: None)
  Receive Date: 20100714
  Receipt Date: 20100708
  Transmission Date: 20110219
  Serious: Yes (Death, Life-Threatening, Hospitalization, Other)
  Sender: FDA-Public Use
  Company Number: PL-PFIZER INC-2006114524

PATIENT
  Age: 72 Year
  Sex: Male
  Weight: 70 kg

DRUGS (1)
  1. SUNITINIB MALATE [Suspect]
     Indication: METASTATIC RENAL CELL CARCINOMA
     Dosage: 50 MG, 1X/DAY
     Route: 048
     Dates: start: 20060209, end: 20060308

REACTIONS (3)
  - CARDIAC ARREST [None]
  - LOSS OF CONSCIOUSNESS [None]
  - MOUTH HAEMORRHAGE [None]
